FAERS Safety Report 24136068 (Version 3)
Quarter: 2024Q3

REPORT INFORMATION
  Report Type: Spontaneous
  Country: FR (occurrence: FR)
  Receive Date: 20240725
  Receipt Date: 20240828
  Transmission Date: 20241016
  Serious: Yes (Other)
  Sender: IDORSIA PHARMACEUTICALS
  Company Number: FR-IDORSIA-008286-2024-FR

PATIENT
  Age: 52 Year
  Sex: Male
  Weight: 94 kg

DRUGS (1)
  1. QUVIVIQ [Suspect]
     Active Substance: DARIDOREXANT
     Indication: Insomnia
     Dosage: 50 MG
     Route: 048
     Dates: start: 20240417, end: 20240504

REACTIONS (6)
  - Suicidal ideation [Recovered/Resolved]
  - Fatigue [Recovered/Resolved]
  - Nausea [Recovered/Resolved]
  - Dizziness [Recovered/Resolved]
  - Malaise [Recovered/Resolved]
  - Hypnagogic hallucination [Recovered/Resolved]

NARRATIVE: CASE EVENT DATE: 20240418
